FAERS Safety Report 9324266 (Version 1)
Quarter: 2013Q2

REPORT INFORMATION
  Report Type: Spontaneous
  Country: US (occurrence: US)
  Receive Date: 20130603
  Receipt Date: 20130603
  Transmission Date: 20140414
  Serious: Yes (Hospitalization)
  Sender: FDA-Public Use
  Company Number: US-EISAI INC-E2020-12405-SPO-US

PATIENT
  Age: 71 Year
  Sex: Female

DRUGS (1)
  1. ARICEPT [Suspect]
     Indication: DEMENTIA ALZHEIMER^S TYPE
     Route: 048
     Dates: start: 201209, end: 201209

REACTIONS (4)
  - Cognitive disorder [Recovering/Resolving]
  - Tremor [Recovered/Resolved]
  - Convulsion [Recovered/Resolved]
  - Aggression [Recovering/Resolving]
